FAERS Safety Report 6163411-2 (Version None)
Quarter: 2009Q2

REPORT INFORMATION
  Report Type: 
  Country: None (occurrence: None)
  Receive Date: 20090422
  Receipt Date: 20090416
  Transmission Date: 20091009
  Serious: Yes (Other)
  Sender: FDA-Public Use
  Company Number: PHEH2008US06600

PATIENT
  Sex: Female

DRUGS (3)
  1. ZOMETA [Suspect]
     Dosage: 4 MG, QW3
     Route: 042
  2. CHEMOTHERAPEUTICS NOS [Suspect]
     Dosage: EVERY THREE WEEKS
  3. HERCEPTIN [Concomitant]
     Dosage: UNK

REACTIONS (19)
  - ANXIETY [None]
  - BONE DISORDER [None]
  - BREAST CANCER [None]
  - CELLULITIS [None]
  - DECREASED INTEREST [None]
  - DEPRESSION [None]
  - GINGIVAL EROSION [None]
  - GINGIVAL INFECTION [None]
  - HEPATIC NEOPLASM MALIGNANT [None]
  - INJURY [None]
  - MASTECTOMY [None]
  - METASTASES TO LIVER [None]
  - NEOPLASM [None]
  - ORAL DISORDER [None]
  - OSTEOMYELITIS [None]
  - OSTEONECROSIS [None]
  - PAIN [None]
  - PERIODONTAL DISEASE [None]
  - PYREXIA [None]
